FAERS Safety Report 18408328 (Version 3)
Quarter: 2021Q2

REPORT INFORMATION
  Report Type: Spontaneous
  Country: US (occurrence: US)
  Receive Date: 20201020
  Receipt Date: 20210421
  Transmission Date: 20210717
  Serious: Yes (Hospitalization)
  Sender: FDA-Public Use
  Company Number: US-SEATTLE GENETICS-2020SGN03777

PATIENT
  Age: 67 Year
  Sex: Female
  Weight: 62.13 kg

DRUGS (9)
  1. TUKYSA [Suspect]
     Active Substance: TUCATINIB
     Dosage: 300 MG
     Route: 048
     Dates: start: 20200804
  2. KEPPRA [Concomitant]
     Active Substance: LEVETIRACETAM
  3. CAPECITABINE. [Concomitant]
     Active Substance: CAPECITABINE
  4. HERCEPTIN [Concomitant]
     Active Substance: TRASTUZUMAB
  5. ZOFRAN [Concomitant]
     Active Substance: ONDANSETRON HYDROCHLORIDE
  6. AMLODIPINE [Concomitant]
     Active Substance: AMLODIPINE BESYLATE
  7. MIRTAZAPINE. [Concomitant]
     Active Substance: MIRTAZAPINE
  8. TUKYSA [Suspect]
     Active Substance: TUCATINIB
     Indication: BREAST CANCER
     Dosage: 300 MG, BID
     Route: 048
     Dates: start: 20200804
  9. TUKYSA [Suspect]
     Active Substance: TUCATINIB
     Dosage: 150 MG
     Route: 065

REACTIONS (8)
  - Fall [Unknown]
  - Decreased appetite [Unknown]
  - Vomiting [Unknown]
  - Dysphagia [Unknown]
  - Catatonia [Unknown]
  - Erythema [Unknown]
  - Product use complaint [Unknown]
  - Brain operation [Unknown]

NARRATIVE: CASE EVENT DATE: 20201014
